FAERS Safety Report 7113009-4 (Version None)
Quarter: 2010Q4

REPORT INFORMATION
  Report Type: 
  Country: None (occurrence: None)
  Receive Date: 20101119
  Receipt Date: 20101117
  Transmission Date: 20110411
  Serious: Yes (Hospitalization)
  Sender: FDA-Public Use
  Company Number: FR-KINGPHARMUSA00001-K201001408

PATIENT
  Sex: Female

DRUGS (1)
  1. ALTACE [Suspect]

REACTIONS (1)
  - LARYNGOSPASM [None]
